FAERS Safety Report 9468098 (Version 1)
Quarter: 2013Q3

REPORT INFORMATION
  Report Type: Spontaneous
  Country: US (occurrence: US)
  Receive Date: 20130821
  Receipt Date: 20130821
  Transmission Date: 20140515
  Serious: Yes (Death)
  Sender: FDA-Public Use
  Company Number: US-PFIZER INC-2013238250

PATIENT
  Sex: Female

DRUGS (1)
  1. SUTENT [Suspect]
     Indication: OVARIAN CLEAR CELL CARCINOMA
     Dosage: 37.5 MG, 1X/DAY
     Route: 048

REACTIONS (4)
  - Death [Fatal]
  - Off label use [Unknown]
  - Disease progression [Unknown]
  - Ovarian clear cell carcinoma [Unknown]
